FAERS Safety Report 11771547 (Version 1)
Quarter: 2015Q4

REPORT INFORMATION
  Report Type: Spontaneous
  Country: US (occurrence: None)
  Receive Date: 20151123
  Receipt Date: 20151123
  Transmission Date: 20160304
  Serious: Yes (Life-Threatening)
  Sender: FDA-Public Use
  Company Number: None

PATIENT
  Age: 16 Year
  Sex: Male
  Weight: 56.7 kg

DRUGS (1)
  1. FLUOXETINE [Suspect]
     Active Substance: FLUOXETINE HYDROCHLORIDE
     Indication: DEPRESSION
     Route: 048
     Dates: start: 20151121

REACTIONS (6)
  - Throat tightness [None]
  - Dyspnoea [None]
  - Urticaria [None]
  - Eye swelling [None]
  - Lacrimation increased [None]
  - Reaction to azo-dyes [None]

NARRATIVE: CASE EVENT DATE: 20151121
